FAERS Safety Report 7830676-8 (Version None)
Quarter: 2011Q4

REPORT INFORMATION
  Report Type: 
  Country: None (occurrence: None)
  Receive Date: 20111021
  Receipt Date: 20111012
  Transmission Date: 20120403
  Serious: Yes (Other)
  Sender: FDA-Public Use
  Company Number: FR-VERTEX PHARMACEUTICALS INC.-AE-2011-001787

PATIENT
  Sex: Male
  Weight: 65 kg

DRUGS (7)
  1. AOTAL [Concomitant]
  2. VX-950 [Suspect]
     Indication: HEPATITIS C
     Route: 048
     Dates: start: 20110704, end: 20110928
  3. RIBAVIRINE [Concomitant]
     Indication: HEPATITIS C
     Route: 048
     Dates: start: 20110704
  4. IBUPROFEN (ADVIL) [Concomitant]
  5. PIASCLEDINE [Concomitant]
     Indication: GINGIVITIS
  6. ACETAMINOPHEN [Concomitant]
     Dates: start: 20110704
  7. PEGINTERFERON ALFA-2A [Concomitant]
     Indication: HEPATITIS C
     Route: 058
     Dates: start: 20110704

REACTIONS (2)
  - CYTOLYTIC HEPATITIS [None]
  - HEPATITIS CHOLESTATIC [None]
